FAERS Safety Report 23156653 (Version 1)
Quarter: 2023Q4

REPORT INFORMATION
  Report Type: Spontaneous
  Country: ES (occurrence: None)
  Receive Date: 20231107
  Receipt Date: 20231107
  Transmission Date: 20240109
  Serious: Yes (Life-Threatening)
  Sender: FDA-Public Use
  Company Number: 2023A251023

PATIENT
  Age: 15 Year
  Sex: Female

DRUGS (1)
  1. KOSELUGO [Suspect]
     Active Substance: SELUMETINIB
     Indication: Neurofibromatosis
     Route: 048
     Dates: start: 20230701, end: 20231013

REACTIONS (4)
  - Metastases to meninges [Not Recovered/Not Resolved]
  - Underdose [Unknown]
  - Sciatica [Unknown]
  - Headache [Unknown]
